FAERS Safety Report 7211882-2 (Version None)
Quarter: 2011Q1

REPORT INFORMATION
  Report Type: 
  Country: None (occurrence: None)
  Receive Date: 20110106
  Receipt Date: 20101230
  Transmission Date: 20110831
  Serious: Yes (Other)
  Sender: FDA-Public Use
  Company Number: US-BIOGENIDEC-2006BI003202

PATIENT
  Age: 51 Year
  Sex: Female

DRUGS (4)
  1. BLOOD PRESSURE MEDICATION (NOS) [Concomitant]
     Indication: BLOOD PRESSURE INADEQUATELY CONTROLLED
  2. AVONEX [Suspect]
     Indication: MULTIPLE SCLEROSIS
     Route: 030
     Dates: start: 19990412, end: 20010101
  3. AVONEX [Suspect]
     Route: 030
     Dates: start: 20060221, end: 20070309
  4. AVONEX [Suspect]
     Route: 030
     Dates: start: 20100405

REACTIONS (10)
  - INJECTION SITE PAIN [None]
  - PYREXIA [None]
  - BACK PAIN [None]
  - NAUSEA [None]
  - HEADACHE [None]
  - HYPOTENSION [None]
  - DIARRHOEA [None]
  - MUSCULOSKELETAL PAIN [None]
  - MEMORY IMPAIRMENT [None]
  - VERTIGO [None]
